FAERS Safety Report 18384695 (Version 2)
Quarter: 2020Q4

REPORT INFORMATION
  Report Type: Spontaneous
  Country: US (occurrence: US)
  Receive Date: 20201015
  Receipt Date: 20201016
  Transmission Date: 20210114
  Serious: Yes (Death, Hospitalization, Other)
  Sender: FDA-Public Use
  Company Number: US-ABBVIE-19K-163-3165132-00

PATIENT
  Age: 47 Year
  Sex: Female

DRUGS (1)
  1. IMBRUVICA [Suspect]
     Active Substance: IBRUTINIB
     Indication: MARGINAL ZONE LYMPHOMA
     Dosage: 560 MG, QD
     Route: 048

REACTIONS (8)
  - Death [Fatal]
  - Diabetes mellitus [Unknown]
  - Cardiac failure congestive [Unknown]
  - End stage renal disease [Unknown]
  - Dialysis [Unknown]
  - Obesity [Unknown]
  - Hypertension [Unknown]
  - Respiratory disorder [Unknown]

NARRATIVE: CASE EVENT DATE: 20191012
